FAERS Safety Report 4988079-X (Version None)
Quarter: 2006Q2

REPORT INFORMATION
  Report Type: 
  Country: None (occurrence: None)
  Receive Date: 20060501
  Receipt Date: 20060421
  Transmission Date: 20061013
  Serious: Yes (Hospitalization)
  Sender: FDA-Public Use
  Company Number: US-MERCK-0604USA03487

PATIENT
  Age: 64 Year
  Sex: Male

DRUGS (10)
  1. ZANTAC [Concomitant]
     Route: 042
  2. PHENERGAN INJECTION [Concomitant]
     Route: 065
  3. DEMEROL [Concomitant]
     Route: 042
  4. XOPENEX [Concomitant]
     Route: 065
  5. LASIX [Concomitant]
     Route: 065
  6. TOPROL-XL [Concomitant]
     Route: 065
  7. MEFOXIN [Suspect]
     Route: 042
     Dates: start: 20060413, end: 20060413
  8. MEFOXIN [Suspect]
     Route: 042
     Dates: start: 20060401, end: 20060416
  9. IRON (UNSPECIFIED) [Concomitant]
     Indication: ANAEMIA
     Route: 065
  10. POTASSIUM (UNSPECIFIED) [Concomitant]
     Route: 065

REACTIONS (6)
  - HYPOTENSION [None]
  - INTERNATIONAL NORMALISED RATIO INCREASED [None]
  - POST PROCEDURAL HAEMORRHAGE [None]
  - PROTHROMBIN TIME PROLONGED [None]
  - RENAL FAILURE ACUTE [None]
  - RENAL TUBULAR NECROSIS [None]
